FAERS Safety Report 10208042 (Version 1)
Quarter: 2014Q2

REPORT INFORMATION
  Report Type: Spontaneous
  Country: US (occurrence: None)
  Receive Date: 20140527
  Receipt Date: 20140527
  Transmission Date: 20141212
  Serious: No
  Sender: FDA-Public Use
  Company Number: None

PATIENT
  Age: 44 Year
  Sex: Male

DRUGS (2)
  1. ESTRO [Suspect]
     Indication: WEIGHT DECREASED
     Dates: start: 20120907, end: 20120914
  2. TESTROLEAN [Suspect]
     Indication: BLOOD TESTOSTERONE
     Dates: start: 20120907, end: 20120914

REACTIONS (12)
  - Drug-induced liver injury [None]
  - Malaise [None]
  - Abdominal pain [None]
  - Diarrhoea [None]
  - Blood bilirubin increased [None]
  - Aspartate aminotransferase increased [None]
  - Alanine aminotransferase increased [None]
  - Blood alkaline phosphatase increased [None]
  - Cholelithiasis [None]
  - Pruritus [None]
  - Somnolence [None]
  - Cholestasis [None]
